FAERS Safety Report 6201076-1 (Version None)
Quarter: 2009Q2

REPORT INFORMATION
  Report Type: 
  Country: None (occurrence: None)
  Receive Date: 20090526
  Receipt Date: 20090514
  Transmission Date: 20091009
  Serious: Yes (Other)
  Sender: FDA-Public Use
  Company Number: US-BAYER-200921185NA

PATIENT
  Age: 39 Year
  Sex: Female

DRUGS (3)
  1. BETASERON [Suspect]
     Indication: MULTIPLE SCLEROSIS
     Route: 058
     Dates: start: 20090414
  2. BETASERON [Suspect]
     Dosage: AS USED: 4 MIU
     Route: 058
  3. BETASERON [Suspect]
     Dosage: TOTAL DAILY DOSE: 6 MIU
     Route: 058

REACTIONS (4)
  - FATIGUE [None]
  - INJECTION SITE RASH [None]
  - NAUSEA [None]
  - SOMNOLENCE [None]
